FAERS Safety Report 11182557 (Version 5)
Quarter: 2016Q4

REPORT INFORMATION
  Report Type: Spontaneous
  Country: US (occurrence: US)
  Receive Date: 20150611
  Receipt Date: 20161101
  Transmission Date: 20170206
  Serious: Yes (Hospitalization, Other)
  Sender: FDA-Public Use
  Company Number: US-ASTELLAS-2015US018080

PATIENT
  Age: 77 Year
  Sex: Male

DRUGS (3)
  1. TEMOZOLOMIDE. [Concomitant]
     Active Substance: TEMOZOLOMIDE
     Indication: PRODUCT USED FOR UNKNOWN INDICATION
     Dosage: 180 MG (1 CAPSULES), ONCE DAILY
     Route: 048
  2. TEMOZOLOMIDE. [Concomitant]
     Active Substance: TEMOZOLOMIDE
     Indication: PRODUCT USED FOR UNKNOWN INDICATION
     Dosage: 140 MG (1 CAPSULE), ONCE DAILY
     Route: 048
  3. XTANDI [Suspect]
     Active Substance: ENZALUTAMIDE
     Indication: PROSTATE CANCER
     Dosage: 160 MG (4 CAPSULE), ONCE DAILY
     Route: 048
     Dates: start: 20150424

REACTIONS (10)
  - Pneumonia [Unknown]
  - Hot flush [Not Recovered/Not Resolved]
  - Cardiac failure congestive [Unknown]
  - Peripheral swelling [Unknown]
  - Weight decreased [Unknown]
  - Muscle spasms [Not Recovered/Not Resolved]
  - Decreased appetite [Unknown]
  - Arthralgia [Unknown]
  - Arthropathy [Unknown]
  - Night sweats [Unknown]

NARRATIVE: CASE EVENT DATE: 20161015
